FAERS Safety Report 15689189 (Version 1)
Quarter: 2018Q4

REPORT INFORMATION
  Report Type: Spontaneous
  Country: BE (occurrence: BE)
  Receive Date: 20181205
  Receipt Date: 20181205
  Transmission Date: 20190205
  Serious: Yes (Other)
  Sender: FDA-Public Use
  Company Number: BE-IMPAX LABORATORIES, LLC-2018-IPXL-03983

PATIENT
  Age: 43 Year
  Sex: Male

DRUGS (2)
  1. CABERGOLINE. [Suspect]
     Active Substance: CABERGOLINE
     Indication: GONADOTROPHIN DEFICIENCY
  2. CABERGOLINE. [Suspect]
     Active Substance: CABERGOLINE
     Indication: HYPERPROLACTINAEMIA
     Dosage: 0.5 MILLIGRAM, 1 /WEEK
     Route: 065

REACTIONS (1)
  - Pneumocephalus [Unknown]
